FAERS Safety Report 9762770 (Version 1)
Quarter: 2013Q4

REPORT INFORMATION
  Report Type: Spontaneous
  Country: TR (occurrence: None)
  Receive Date: 20131213
  Receipt Date: 20131213
  Transmission Date: 20140711
  Serious: Yes (Other)
  Sender: FDA-Public Use
  Company Number: B0951984A

PATIENT
  Age: 62 Year
  Sex: Male

DRUGS (1)
  1. MELPHALAN UNSPECIFIED INJECTABLE (GENERIC) (MELPHALAN) [Suspect]
     Indication: PRODUCT USED FOR UNKNOWN INDICATION
     Route: 042

REACTIONS (8)
  - Encephalopathy [None]
  - Mucosal inflammation [None]
  - Hallucination, visual [None]
  - Agitation [None]
  - Anxiety [None]
  - Cytokine storm [None]
  - Interleukin level increased [None]
  - Metabolic disorder [None]
